FAERS Safety Report 12354419 (Version 1)
Quarter: 2016Q2

REPORT INFORMATION
  Report Type: Spontaneous
  Country: US (occurrence: US)
  Receive Date: 20160511
  Receipt Date: 20160511
  Transmission Date: 20160815
  Serious: Yes (Other)
  Sender: FDA-Public Use
  Company Number: US-CIPLA LTD.-2016US04693

PATIENT

DRUGS (5)
  1. TEMOZOLOMIDE. [Suspect]
     Active Substance: TEMOZOLOMIDE
     Dosage: 100 MG/M2, ONE HOUR BEFORE IRINOTECAN ON DAYS 1 TO 5
     Route: 048
  2. ALISERTIB [Suspect]
     Active Substance: ALISERTIB
     Indication: NEUROBLASTOMA
     Dosage: 45 MG/M2, QD, ON DAYS 1 TO 7 AFTER FASTING
     Route: 048
  3. IRINOTECAN [Suspect]
     Active Substance: IRINOTECAN
     Indication: NEUROBLASTOMA
     Dosage: UNK, PRIOR CHEMOTHERAPY
     Route: 065
  4. IRINOTECAN [Suspect]
     Active Substance: IRINOTECAN
     Dosage: 50 MG/M2, OVER 60 MINUTES, ON DAYS 1 TO 5
     Route: 042
  5. TEMOZOLOMIDE. [Suspect]
     Active Substance: TEMOZOLOMIDE
     Indication: NEUROBLASTOMA
     Dosage: UNK, PRIOR CHEMOTHERAPY
     Route: 065

REACTIONS (1)
  - Toxicity to various agents [Unknown]
